FAERS Safety Report 16785265 (Version 1)
Quarter: 2019Q3

REPORT INFORMATION
  Report Type: Spontaneous
  Country: JP (occurrence: JP)
  Receive Date: 20190909
  Receipt Date: 20190909
  Transmission Date: 20191005
  Serious: Yes (Other)
  Sender: FDA-Public Use
  Company Number: JP-TEVA-2019-JP-1105183

PATIENT
  Age: 74 Year
  Sex: Male

DRUGS (3)
  1. TRASTUZUMAB. [Suspect]
     Active Substance: TRASTUZUMAB
     Indication: GASTRIC CANCER STAGE IV
     Dosage: 225 MG/BODY [SIC]
     Route: 065
  2. OXALIPLATIN. [Suspect]
     Active Substance: OXALIPLATIN
     Indication: GASTRIC CANCER STAGE IV
     Dosage: 130 MG/BODY [SIC]
     Route: 065
  3. TS-1 [Suspect]
     Active Substance: GIMERACIL\OTERACIL\TEGAFUR
     Indication: GASTRIC CANCER STAGE IV
     Route: 065

REACTIONS (5)
  - Decreased appetite [Recovering/Resolving]
  - Cognitive disorder [Recovered/Resolved]
  - Diarrhoea [Recovering/Resolving]
  - Loss of personal independence in daily activities [Recovering/Resolving]
  - Vitamin B1 decreased [Recovered/Resolved]
